FAERS Safety Report 9485409 (Version 3)
Quarter: 2014Q2

REPORT INFORMATION
  Report Type: Spontaneous
  Country: AR (occurrence: AR)
  Receive Date: 20130829
  Receipt Date: 20140508
  Transmission Date: 20141212
  Serious: Yes (Other)
  Sender: FDA-Public Use
  Company Number: AR-AMGEN-ARGSP2013060497

PATIENT
  Age: 49 Year
  Sex: Female

DRUGS (1)
  1. ENBREL [Suspect]
     Indication: RHEUMATOID ARTHRITIS
     Dosage: 50 MG, WEEKLY
     Route: 065
     Dates: start: 20110102, end: 2011

REACTIONS (6)
  - Musculoskeletal disorder [Recovered/Resolved]
  - Arthropathy [Unknown]
  - Patient-device incompatibility [Recovered/Resolved]
  - Red blood cell count decreased [Unknown]
  - Arthritis [Not Recovered/Not Resolved]
  - Infection [Recovered/Resolved]
